FAERS Safety Report 8344281-0 (Version None)
Quarter: 2012Q2

REPORT INFORMATION
  Report Type: 
  Country: None (occurrence: None)
  Receive Date: 20120508
  Receipt Date: 20120502
  Transmission Date: 20120825
  Serious: Yes (Hospitalization)
  Sender: FDA-Public Use
  Company Number: FR-B.I. PHARMACEUTICALS,INC./RIDGEFIELD-2012-FF-00532FF

PATIENT
  Sex: Male

DRUGS (2)
  1. PRADAXA [Suspect]
     Indication: ATRIAL FIBRILLATION
     Route: 048
     Dates: start: 20111001, end: 20120306
  2. ERYTHROMYCIN [Suspect]
     Indication: LUNG DISORDER
     Route: 048
     Dates: start: 20120302, end: 20120306

REACTIONS (3)
  - PYREXIA [None]
  - PRURITUS GENERALISED [None]
  - EOSINOPHILIA [None]
